FAERS Safety Report 4617880-7 (Version None)
Quarter: 2005Q1

REPORT INFORMATION
  Report Type: 
  Country: None (occurrence: None)
  Receive Date: 20050324
  Receipt Date: 20050307
  Transmission Date: 20050727
  Serious: Yes (Other)
  Sender: FDA-Public Use
  Company Number: PHEH2005US02884

PATIENT
  Age: 58 Year
  Sex: Female

DRUGS (1)
  1. GLEEVEC [Suspect]
     Indication: CHRONIC MYELOID LEUKAEMIA
     Dosage: 600 MG, QD
     Route: 048
     Dates: start: 20020501

REACTIONS (6)
  - ANGIOPATHY [None]
  - ATOPY [None]
  - CERVICAL DYSPLASIA [None]
  - HUMAN PAPILLOMA VIRUS TEST POSITIVE [None]
  - SMEAR CERVIX ABNORMAL [None]
  - VAGINAL DYSPLASIA [None]
